FAERS Safety Report 25078706 (Version 2)
Quarter: 2025Q2

REPORT INFORMATION
  Report Type: Spontaneous
  Country: US (occurrence: US)
  Receive Date: 20250314
  Receipt Date: 20250401
  Transmission Date: 20250717
  Serious: No
  Sender: MERZ
  Company Number: US-Merz Pharmaceuticals GmbH-2025030000075

PATIENT

DRUGS (3)
  1. XEOMIN [Suspect]
     Active Substance: INCOBOTULINUMTOXINA
     Indication: Skin wrinkling
     Dosage: 59 INTERNATIONAL UNIT
     Dates: start: 20250103, end: 20250103
  2. XEOMIN [Suspect]
     Active Substance: INCOBOTULINUMTOXINA
     Indication: Skin cosmetic procedure
     Dosage: 59 INTERNATIONAL UNIT
     Dates: start: 20250123, end: 20250123
  3. XEOMIN [Suspect]
     Active Substance: INCOBOTULINUMTOXINA
     Indication: Skin wrinkling

REACTIONS (2)
  - Drug ineffective [Not Recovered/Not Resolved]
  - Product preparation issue [Unknown]

NARRATIVE: CASE EVENT DATE: 20250101
